FAERS Safety Report 8252235-8 (Version None)
Quarter: 2012Q2

REPORT INFORMATION
  Report Type: 
  Country: None (occurrence: None)
  Receive Date: 20120402
  Receipt Date: 20110902
  Transmission Date: 20120825
  Serious: No
  Sender: FDA-Public Use
  Company Number: US-ABBOTT-11P-163-0852007-00

PATIENT
  Age: 19 Year
  Sex: Male

DRUGS (2)
  1. ANDROGEL [Suspect]
     Dosage: ONE PACKET DAILY
  2. ANDROGEL [Suspect]
     Indication: BLOOD TESTOSTERONE DECREASED
     Dosage: THREE PACKETS DAILY

REACTIONS (1)
  - HYPERTRICHOSIS [None]
